FAERS Safety Report 23850353 (Version 1)
Quarter: 2024Q2

REPORT INFORMATION
  Report Type: Report from Study
  Country: IT (occurrence: IT)
  Receive Date: 20240513
  Receipt Date: 20240513
  Transmission Date: 20240715
  Serious: Yes (Hospitalization, Other)
  Sender: FDA-Public Use
  Company Number: None

PATIENT
  Age: 2 Year
  Sex: Male
  Weight: 12 kg

DRUGS (2)
  1. METHOTREXATE [Suspect]
     Active Substance: METHOTREXATE
     Indication: B-cell type acute leukaemia
     Dosage: 290.00 MG INFUSION IN 50 ML NACL 0.9% OVER 30 MIN. + 2645.00 MG INFUSION IN 750 ML; NACL 0.9% IN ...
     Route: 042
     Dates: start: 20240410, end: 20240410
  2. PURINETHOL [Concomitant]
     Active Substance: MERCAPTOPURINE
     Indication: B-cell type acute leukaemia
     Dosage: 12.5 MG EVERY OTHER DAY
     Route: 048
     Dates: start: 20240405, end: 20240415

REACTIONS (3)
  - Rash pruritic [Recovered/Resolved]
  - Thrombocytopenia [Not Recovered/Not Resolved]
  - Stomatitis [Recovering/Resolving]

NARRATIVE: CASE EVENT DATE: 20240415
